FAERS Safety Report 7471256-6 (Version None)
Quarter: 2011Q2

REPORT INFORMATION
  Report Type: 
  Country: None (occurrence: None)
  Receive Date: 20110510
  Receipt Date: 20110506
  Transmission Date: 20111010
  Serious: Yes (Other)
  Sender: FDA-Public Use
  Company Number: CA-ABBOTT-10P-028-0689544-00

PATIENT
  Age: 58 Year
  Sex: Female

DRUGS (4)
  1. BIAXIN [Suspect]
     Indication: URINARY TRACT INFECTION
     Route: 048
     Dates: start: 20100608, end: 20100608
  2. IMURAN [Concomitant]
     Indication: PRODUCT USED FOR UNKNOWN INDICATION
     Route: 048
  3. REMICADE [Suspect]
     Indication: COLITIS ULCERATIVE
     Route: 042
     Dates: start: 20060501
  4. REMICADE [Suspect]
     Route: 042

REACTIONS (7)
  - RESPIRATORY TRACT INFECTION [None]
  - DYSPNOEA [None]
  - PYREXIA [None]
  - URINARY TRACT INFECTION [None]
  - THROAT TIGHTNESS [None]
  - RESPIRATORY TRACT CONGESTION [None]
  - COUGH [None]
